FAERS Safety Report 7481310-0 (Version None)
Quarter: 2011Q2

REPORT INFORMATION
  Report Type: 
  Country: None (occurrence: None)
  Receive Date: 20110512
  Receipt Date: 20110512
  Transmission Date: 20111010
  Serious: Yes (Other)
  Sender: FDA-Public Use
  Company Number: None

PATIENT
  Sex: Male
  Weight: 78.4723 kg

DRUGS (2)
  1. CYMBALTA [Suspect]
     Indication: DEPRESSION
     Dosage: 60MG 1 DAY 047
     Dates: start: 20070501, end: 20100201
  2. CELEXA [Suspect]
     Indication: DEPRESSION
     Dosage: 20MG 1 DAY 047
     Dates: start: 20070501, end: 20100201

REACTIONS (19)
  - ABDOMINAL DISTENSION [None]
  - DRY MOUTH [None]
  - AGGRESSION [None]
  - FATIGUE [None]
  - DEPRESSION [None]
  - NAUSEA [None]
  - ABDOMINAL PAIN UPPER [None]
  - EPISTAXIS [None]
  - CONSTIPATION [None]
  - IRRITABILITY [None]
  - HOSTILITY [None]
  - PARADOXICAL DRUG REACTION [None]
  - AGITATION [None]
  - HYPOPHAGIA [None]
  - FLUID INTAKE REDUCED [None]
  - DIABETES MELLITUS INADEQUATE CONTROL [None]
  - ANXIETY [None]
  - ABNORMAL BEHAVIOUR [None]
  - IATROGENIC INJURY [None]
